FAERS Safety Report 17247975 (Version 1)
Quarter: 2019Q4

REPORT INFORMATION
  Report Type: Spontaneous
  Country: US (occurrence: US)
  Receive Date: 20191213
  Receipt Date: 20191213
  Transmission Date: 20200122
  Serious: No
  Sender: FDA-Public Use
  Company Number: None

PATIENT
  Age: 66 Year
  Sex: Female

DRUGS (1)
  1. PROLIA [Suspect]
     Active Substance: DENOSUMAB
     Route: 058
     Dates: start: 2012

REACTIONS (2)
  - Arthralgia [None]
  - Pain in extremity [None]

NARRATIVE: CASE EVENT DATE: 20190703
